FAERS Safety Report 6696960-9 (Version None)
Quarter: 2010Q2

REPORT INFORMATION
  Report Type: 
  Country: None (occurrence: None)
  Receive Date: 20100426
  Receipt Date: 20100416
  Transmission Date: 20101027
  Serious: Yes (Hospitalization, Other)
  Sender: FDA-Public Use
  Company Number: PHHY2010ES23925

PATIENT
  Age: 28 Year
  Sex: Male

DRUGS (6)
  1. TEGRETOL [Suspect]
     Indication: EPILEPSY
     Dosage: 1.2 G, UNK
     Route: 048
     Dates: start: 20091110, end: 20091206
  2. RIVOTRIL [Suspect]
     Indication: EPILEPSY
     Dosage: UNK
  3. ETHOSUXIMIDE [Concomitant]
     Indication: ABNORMAL BEHAVIOUR
     Dosage: 750 MG, UNK
     Route: 048
     Dates: start: 20080101
  4. DEPAKENE [Concomitant]
     Indication: EPILEPSY
     Dosage: 2.5 MG, UNK
  5. RISPERDAL [Concomitant]
     Indication: ABNORMAL BEHAVIOUR
     Dosage: 12 MG, UNK
     Route: 048
  6. SINOGAN [Concomitant]
     Indication: ABNORMAL BEHAVIOUR
     Dosage: 200 MG, UNK
     Route: 048

REACTIONS (2)
  - CEREBRAL ATROPHY [None]
  - DIPLOPIA [None]
